FAERS Safety Report 17339801 (Version 1)
Quarter: 2020Q1

REPORT INFORMATION
  Report Type: Spontaneous
  Country: US (occurrence: US)
  Receive Date: 20200129
  Receipt Date: 20200129
  Transmission Date: 20200409
  Serious: No
  Sender: FDA-Public Use
  Company Number: US-009507513-2001USA010065

PATIENT
  Age: 75 Year
  Sex: Female

DRUGS (2)
  1. BELSOMRA [Suspect]
     Active Substance: SUVOREXANT
     Dosage: TAKE 1 AT NIGHT
     Route: 048
     Dates: end: 202001
  2. BELSOMRA [Suspect]
     Active Substance: SUVOREXANT
     Dosage: TAKE 1 AT NIGHT
     Route: 048
     Dates: start: 202001

REACTIONS (3)
  - Product packaging quantity issue [Unknown]
  - Poor quality product administered [Unknown]
  - No adverse event [Unknown]

NARRATIVE: CASE EVENT DATE: 202001
